FAERS Safety Report 4754124-X (Version None)
Quarter: 2005Q3

REPORT INFORMATION
  Report Type: 
  Country: None (occurrence: None)
  Receive Date: 20050825
  Receipt Date: 20050304
  Transmission Date: 20060218
  Serious: Yes (Other)
  Sender: FDA-Public Use
  Company Number: HQWYE026310MAR05

PATIENT
  Age: 2 Year
  Sex: Male
  Weight: 14.98 kg

DRUGS (2)
  1. CHILDREN'S ADVIL [Suspect]
     Indication: PAIN
     Dosage: 1 TEASPOON DAILY TO TWO TIMES PER DAY, ORAL
     Route: 048
     Dates: start: 20050228, end: 20050302
  2. AMOXICILLIN [Suspect]
     Indication: EAR INFECTION
     Dosage: 2 TSP 2X PER 1 DAY, ORAL
     Route: 048
     Dates: start: 20050227, end: 20050302

REACTIONS (4)
  - RASH ERYTHEMATOUS [None]
  - RASH MACULO-PAPULAR [None]
  - RASH PAPULAR [None]
  - URTICARIA [None]
